FAERS Safety Report 4458200-0 (Version None)
Quarter: 2004Q3

REPORT INFORMATION
  Report Type: 
  Country: None (occurrence: None)
  Receive Date: 20040924
  Receipt Date: 20040701
  Transmission Date: 20050211
  Serious: Yes (Other)
  Sender: FDA-Public Use
  Company Number: US-ROCHE-372724

PATIENT
  Age: 61 Year
  Sex: Male
  Weight: 78.9 kg

DRUGS (7)
  1. PEG-INTERFERON ALFA 2A (RO 25-8310) [Suspect]
     Route: 058
     Dates: start: 20001217, end: 20040627
  2. RIBAVIRIN [Suspect]
     Route: 048
     Dates: start: 20001217
  3. SYNTHROID [Concomitant]
     Indication: HYPOTHYROIDISM
     Dates: start: 20010207
  4. ANTI-HISTAMINE TAB [Concomitant]
  5. MULTI-VITAMINS [Concomitant]
     Dosage: DAILY
  6. VITAMIN E [Concomitant]
     Dosage: DAILY
  7. TERAZOSIN HCL [Concomitant]
     Dosage: 1 MG AM AND 5MG PM

REACTIONS (14)
  - ANTINEUTROPHIL CYTOPLASMIC ANTIBODY POSITIVE [None]
  - ANTINUCLEAR ANTIBODY POSITIVE [None]
  - ARTHRALGIA [None]
  - BLOOD PRESSURE DECREASED [None]
  - COMPLEMENT FACTOR DECREASED [None]
  - HYPOTENSION [None]
  - HYPOTHYROIDISM [None]
  - IMMUNE SYSTEM DISORDER [None]
  - NEPHRITIS INTERSTITIAL [None]
  - OLIGODIPSIA [None]
  - RENAL FAILURE [None]
  - RENAL FAILURE ACUTE [None]
  - SERUM SICKNESS [None]
  - URINARY HESITATION [None]
